FAERS Safety Report 5468478-2 (Version None)
Quarter: 2007Q3

REPORT INFORMATION
  Report Type: 
  Country: None (occurrence: None)
  Receive Date: 20070926
  Receipt Date: 20070621
  Transmission Date: 20080115
  Serious: No
  Sender: FDA-Public Use
  Company Number: US-BRISTOL-MYERS SQUIBB COMPANY-13821756

PATIENT

DRUGS (1)
  1. ORENCIA [Suspect]

REACTIONS (1)
  - RHEUMATOID ARTHRITIS [None]
